FAERS Safety Report 4334070-6 (Version None)
Quarter: 2004Q2

REPORT INFORMATION
  Report Type: 
  Country: None (occurrence: None)
  Receive Date: 20040402
  Receipt Date: 20040324
  Transmission Date: 20050107
  Serious: Yes (Other)
  Sender: FDA-Public Use
  Company Number: 2004020477

PATIENT
  Age: 65 Year
  Sex: Male
  Weight: 90 kg

DRUGS (2)
  1. ATORVASTATIN (ATORVASTATIN) [Suspect]
     Indication: HYPERCHOLESTEROLAEMIA
     Dosage: 1 MG (DAILY), ORAL
     Route: 048
     Dates: start: 20030225, end: 20040223
  2. OMEPRAZOLE [Concomitant]

REACTIONS (3)
  - BALANCE DISORDER [None]
  - LETHARGY [None]
  - MEMORY IMPAIRMENT [None]
